FAERS Safety Report 8290066-3 (Version None)
Quarter: 2012Q2

REPORT INFORMATION
  Report Type: 
  Country: None (occurrence: None)
  Receive Date: 20120412
  Receipt Date: 20120412
  Transmission Date: 20120825
  Serious: Yes (Hospitalization)
  Sender: FDA-Public Use
  Company Number: None

PATIENT
  Sex: Male
  Weight: 90.7 kg

DRUGS (2)
  1. CARBOPLATIN [Suspect]
     Dosage: 1094 MG
     Dates: end: 20120227
  2. TAXOL [Suspect]
     Dosage: 695 MG
     Dates: end: 20120227

REACTIONS (2)
  - PLEURAL EFFUSION [None]
  - CARDIAC FAILURE ACUTE [None]
